FAERS Safety Report 7381411-1 (Version None)
Quarter: 2011Q1

REPORT INFORMATION
  Report Type: 
  Country: None (occurrence: None)
  Receive Date: 20110321
  Receipt Date: 20110310
  Transmission Date: 20110831
  Serious: Yes (Other)
  Sender: FDA-Public Use
  Company Number: GB-ACCORD-008443

PATIENT
  Age: 4 Year
  Sex: Male

DRUGS (6)
  1. VINCRISTINE [Suspect]
     Indication: RHABDOMYOSARCOMA
  2. CYCLOPHOSPHAMIDE [Suspect]
     Indication: RHABDOMYOSARCOMA
  3. IFOSFAMIDE [Suspect]
     Indication: RHABDOMYOSARCOMA
  4. CISPLATIN [Suspect]
     Indication: RHABDOMYOSARCOMA
  5. ETOPOSIDE [Suspect]
     Indication: RHABDOMYOSARCOMA
  6. ACTINOMYCIN D (ACTINOMYCIN D) [Suspect]
     Indication: RHABDOMYOSARCOMA

REACTIONS (8)
  - ACIDOSIS [None]
  - FANCONI SYNDROME ACQUIRED [None]
  - RICKETS [None]
  - OFF LABEL USE [None]
  - NEPHROPATHY TOXIC [None]
  - HYPERPARATHYROIDISM SECONDARY [None]
  - HYPOKALAEMIA [None]
  - TREATMENT NONCOMPLIANCE [None]
